FAERS Safety Report 9325265 (Version 1)
Quarter: 2013Q2

REPORT INFORMATION
  Report Type: Spontaneous
  Country: SI (occurrence: SI)
  Receive Date: 20130604
  Receipt Date: 20130604
  Transmission Date: 20140414
  Serious: Yes (Other)
  Sender: FDA-Public Use
  Company Number: SI-AMGEN-SVNSP2013038949

PATIENT
  Age: 73 Year
  Sex: Female
  Weight: 84 kg

DRUGS (8)
  1. ENBREL [Suspect]
     Indication: RHEUMATOID ARTHRITIS
     Dosage: 50 MG, WEEKLY
     Route: 058
     Dates: start: 20091106
  2. METHOTREXAT                        /00113801/ [Concomitant]
     Indication: RHEUMATOID ARTHRITIS
     Dosage: 15 MG, WEEKLY
  3. GOPTEN [Concomitant]
     Dosage: 4 MG, ONCE A DAY
  4. TERTENSIF [Concomitant]
     Dosage: 1.5 MG, ONCE A DAY
  5. FOLACIN                            /00198401/ [Concomitant]
     Dosage: 10 MG, WEEKLY
  6. DILATREND [Concomitant]
     Dosage: 12.5 MG, TWICE A DAY
  7. EMOZUL [Concomitant]
     Dosage: 20 MG, ONCE A DAY
  8. ASPIRIN PROTECT [Concomitant]
     Dosage: 100 MG, ONCE A DAY

REACTIONS (5)
  - Hypersensitivity [Recovered/Resolved]
  - Rash pruritic [Recovered/Resolved]
  - Dyspnoea [Recovered/Resolved]
  - Wheezing [Recovered/Resolved]
  - Injection site erythema [Recovered/Resolved]
